FAERS Safety Report 18727862 (Version 2)
Quarter: 2021Q2

REPORT INFORMATION
  Report Type: Spontaneous
  Country: US (occurrence: US)
  Receive Date: 20210112
  Receipt Date: 20210416
  Transmission Date: 20210717
  Serious: No
  Sender: FDA-Public Use
  Company Number: US-SCIEGEN-2020SCISPO00531

PATIENT
  Sex: Male

DRUGS (1)
  1. BUPROPION HYDROCHLORIDE. [Suspect]
     Active Substance: BUPROPION HYDROCHLORIDE
     Indication: PRODUCT USED FOR UNKNOWN INDICATION
     Route: 065

REACTIONS (8)
  - Therapy interrupted [Unknown]
  - Abdominal discomfort [Unknown]
  - Back pain [Unknown]
  - Abdominal pain upper [Unknown]
  - Fluid retention [Unknown]
  - Feeling abnormal [Unknown]
  - Arthralgia [Unknown]
  - Swelling [Unknown]
